FAERS Safety Report 9940519 (Version 2)
Quarter: 2014Q1

REPORT INFORMATION
  Report Type: Spontaneous
  Country: JP (occurrence: JP)
  Receive Date: 20140303
  Receipt Date: 20140303
  Transmission Date: 20141002
  Serious: Yes (Hospitalization)
  Sender: FDA-Public Use
  Company Number: JP-PFIZER INC-2014043841

PATIENT
  Age: 79 Year
  Sex: Female

DRUGS (8)
  1. JZOLOFT [Suspect]
     Indication: DEPRESSIVE SYMPTOM
     Dosage: 25 MG, 1X/DAY
     Route: 048
     Dates: start: 20140204, end: 201402
  2. ALEVIATIN [Suspect]
     Dosage: UNK
  3. PROCYLIN [Concomitant]
     Dosage: UNK
  4. GLAKAY [Concomitant]
     Dosage: UNK
  5. BAYASPIRIN [Concomitant]
     Dosage: UNK
  6. MAGMITT [Concomitant]
     Dosage: UNK
  7. SENNARIDE [Concomitant]
     Dosage: UNK
  8. GASMOTIN [Concomitant]
     Dosage: UNK

REACTIONS (4)
  - Depressed level of consciousness [Unknown]
  - Drug level increased [Recovered/Resolved]
  - Hypersomnia [Unknown]
  - Hypokinesia [Unknown]
